FAERS Safety Report 16531762 (Version 1)
Quarter: 2019Q3

REPORT INFORMATION
  Report Type: Spontaneous
  Country: DE (occurrence: DE)
  Receive Date: 20190705
  Receipt Date: 20190705
  Transmission Date: 20191004
  Serious: No
  Sender: FDA-Public Use
  Company Number: DE-BEH-2019103821

PATIENT
  Sex: Male
  Weight: 120 kg

DRUGS (1)
  1. SET, I.V. FLUID TRANSFER/ NEEDLE, HYPODERMIC, SINGLE LUMEN(RESPREEZA) [Suspect]
     Active Substance: .ALPHA.1-PROTEINASE INHIBITOR HUMAN
     Indication: ALPHA-1 ANTI-TRYPSIN DEFICIENCY
     Dosage: 12 GRAM, QW
     Route: 042

REACTIONS (3)
  - No adverse event [Unknown]
  - Product supply issue [Unknown]
  - Intentional overdose [Unknown]
